FAERS Safety Report 19394346 (Version 1)
Quarter: 2021Q2

REPORT INFORMATION
  Report Type: Report from Study
  Country: GB (occurrence: GB)
  Receive Date: 20210609
  Receipt Date: 20210609
  Transmission Date: 20210717
  Serious: Yes (Hospitalization)
  Sender: FDA-Public Use
  Company Number: GB-GW PHARMA-201907GBGW2642

PATIENT

DRUGS (10)
  1. SODIUM VALPROATE [Interacting]
     Active Substance: VALPROATE SODIUM
     Indication: LENNOX-GASTAUT SYNDROME
     Dosage: 400 MILLIGRAM, BID
     Route: 065
     Dates: start: 2013, end: 20190805
  2. RUFINAMIDE [Interacting]
     Active Substance: RUFINAMIDE
     Dosage: 200 MILLIGRAM, BID
     Route: 065
     Dates: start: 20190805
  3. EPIDIOLEX [Interacting]
     Active Substance: CANNABIDIOL
     Dosage: 15 MG/KG/DAY, 150 MILLIGRAM, BID
     Route: 048
     Dates: start: 201908
  4. EPIDIOLEX [Suspect]
     Active Substance: CANNABIDIOL
     Indication: LENNOX-GASTAUT SYNDROME
     Dosage: 10 MG/KG/DAY, 100 MILLIGRAM, BID
     Route: 048
     Dates: start: 20190624, end: 201908
  5. RUFINAMIDE [Interacting]
     Active Substance: RUFINAMIDE
     Indication: LENNOX-GASTAUT SYNDROME
     Dosage: 300 MILLIGRAM, BID
     Route: 065
     Dates: start: 2015, end: 20190805
  6. SODIUM VALPROATE [Interacting]
     Active Substance: VALPROATE SODIUM
     Dosage: 300 MILLIGRAM, BID
     Route: 065
     Dates: start: 20190805, end: 2019
  7. TOPIRAMATE. [Concomitant]
     Active Substance: TOPIRAMATE
     Indication: LENNOX-GASTAUT SYNDROME
     Dosage: 75 MILLIGRAM, BID
     Route: 065
     Dates: start: 2016
  8. SODIUM VALPROATE [Interacting]
     Active Substance: VALPROATE SODIUM
     Dosage: 200 MILLIGRAM, BID
     Route: 065
     Dates: start: 20191007
  9. SODIUM VALPROATE [Interacting]
     Active Substance: VALPROATE SODIUM
     Dosage: 240 MILLIGRAM, BID
     Route: 065
     Dates: start: 2019, end: 20191007
  10. LAMOTRIGIN [Interacting]
     Active Substance: LAMOTRIGINE
     Indication: LENNOX-GASTAUT SYNDROME
     Dosage: 40 MILLIGRAM, BID
     Route: 065
     Dates: start: 20190401, end: 20190805

REACTIONS (6)
  - Drug interaction [Unknown]
  - Alanine aminotransferase increased [Recovered/Resolved]
  - Nervousness [Recovered/Resolved]
  - Epistaxis [Recovered/Resolved]
  - Alanine aminotransferase increased [Recovered/Resolved]
  - Aspartate aminotransferase increased [Recovered/Resolved]

NARRATIVE: CASE EVENT DATE: 2019
